FAERS Safety Report 13677595 (Version 1)
Quarter: 2017Q2

REPORT INFORMATION
  Report Type: Spontaneous
  Country: US (occurrence: US)
  Receive Date: 20170621
  Receipt Date: 20170621
  Transmission Date: 20170830
  Serious: No
  Sender: FDA-Public Use
  Company Number: None

PATIENT
  Age: 37 Year
  Sex: Female

DRUGS (1)
  1. PROGESTERONE IN OIL 50MG/ML APP PHARMA [Suspect]
     Active Substance: PROGESTERONE
     Indication: INFERTILITY
     Route: 030
     Dates: start: 20170601, end: 20170620

REACTIONS (1)
  - Injection site extravasation [None]

NARRATIVE: CASE EVENT DATE: 20170620
